FAERS Safety Report 14768000 (Version 1)
Quarter: 2018Q2

REPORT INFORMATION
  Report Type: Spontaneous
  Country: IR (occurrence: IR)
  Receive Date: 20180417
  Receipt Date: 20180417
  Transmission Date: 20180711
  Serious: Yes (Other)
  Sender: FDA-Public Use
  Company Number: IR-ARBOR PHARMACEUTICALS, LLC-IR-2018ARB000444

PATIENT
  Age: 42 Year
  Sex: Female

DRUGS (1)
  1. GABAPENTIN ENACARBIL [Suspect]
     Active Substance: GABAPENTIN ENACARBIL
     Indication: INSOMNIA
     Dosage: 100 MG, QD

REACTIONS (1)
  - Psychotic disorder [Recovered/Resolved]
